FAERS Safety Report 16836576 (Version 1)
Quarter: 2019Q3

REPORT INFORMATION
  Report Type: Spontaneous
  Country: US (occurrence: US)
  Receive Date: 20190921
  Receipt Date: 20190921
  Transmission Date: 20191005
  Serious: Yes (Hospitalization)
  Sender: FDA-Public Use
  Company Number: US-TEVA-2019-US-1110167

PATIENT
  Sex: Male

DRUGS (1)
  1. MORPHINE SULFATE. [Suspect]
     Active Substance: MORPHINE SULFATE
     Indication: PAIN
     Dosage: EXTENDED-RELEASE CAPSULES
     Route: 065

REACTIONS (4)
  - Hospitalisation [Unknown]
  - Withdrawal syndrome [Unknown]
  - Product dispensing error [Unknown]
  - Therapeutic response shortened [Unknown]
